FAERS Safety Report 8414612-1 (Version None)
Quarter: 2012Q2

REPORT INFORMATION
  Report Type: 
  Country: None (occurrence: None)
  Receive Date: 20120605
  Receipt Date: 20120529
  Transmission Date: 20120825
  Serious: Yes (Hospitalization)
  Sender: FDA-Public Use
  Company Number: GB-ROCHE-1073066

PATIENT
  Sex: Male

DRUGS (1)
  1. ACTEMRA [Suspect]
     Indication: PRODUCT USED FOR UNKNOWN INDICATION
     Dates: start: 20110401

REACTIONS (5)
  - MYOCARDIAL INFARCTION [None]
  - OBSTRUCTION GASTRIC [None]
  - INFECTION [None]
  - VOMITING [None]
  - ABDOMINAL PAIN [None]
